FAERS Safety Report 11509462 (Version 1)
Quarter: 2015Q3

REPORT INFORMATION
  Report Type: Spontaneous
  Country: US (occurrence: US)
  Receive Date: 20150915
  Receipt Date: 20150915
  Transmission Date: 20151125
  Serious: No
  Sender: FDA-Public Use
  Company Number: US-TAKEDA-2015TUS012208

PATIENT
  Age: 17 Month
  Sex: Male
  Weight: 9.98 kg

DRUGS (3)
  1. PREVACID SOLUTAB [Suspect]
     Active Substance: LANSOPRAZOLE
     Indication: EOSINOPHILIC OESOPHAGITIS
     Dosage: 15 MG, QD
     Route: 048
     Dates: start: 201506
  2. PREVACID SOLUTAB [Suspect]
     Active Substance: LANSOPRAZOLE
     Indication: MULTIPLE ALLERGIES
     Dosage: 15 MG, BID
     Route: 048
     Dates: start: 201506, end: 201506
  3. PREVACID SOLUTAB [Suspect]
     Active Substance: LANSOPRAZOLE
     Indication: HYPERCHLORHYDRIA

REACTIONS (5)
  - Wrong technique in product usage process [Not Recovered/Not Resolved]
  - Abdominal pain upper [Not Recovered/Not Resolved]
  - Decreased appetite [Not Recovered/Not Resolved]
  - Diarrhoea [Recovered/Resolved]
  - Off label use [Not Recovered/Not Resolved]

NARRATIVE: CASE EVENT DATE: 201506
